FAERS Safety Report 15694868 (Version 1)
Quarter: 2018Q4

REPORT INFORMATION
  Report Type: Spontaneous
  Country: US (occurrence: US)
  Receive Date: 20181206
  Receipt Date: 20181206
  Transmission Date: 20190205
  Serious: No
  Sender: FDA-Public Use
  Company Number: US-BAYER-2018-223218

PATIENT
  Age: 10 Year
  Sex: Male
  Weight: 150 kg

DRUGS (3)
  1. BISACODYL. [Concomitant]
     Active Substance: BISACODYL
  2. MIRALAX [Suspect]
     Active Substance: POLYETHYLENE GLYCOL 3350
     Indication: CONSTIPATION
     Dosage: 2 DF, BID
     Dates: start: 201806, end: 20181129
  3. CENTRUM JR [MINERALS NOS;VITAMINS NOS] [Concomitant]
     Dosage: UNK
     Dates: start: 201806

REACTIONS (6)
  - Off label use [Unknown]
  - Weight increased [Unknown]
  - Aggression [Unknown]
  - Mental disorder [Unknown]
  - Product use in unapproved indication [Unknown]
  - Abnormal behaviour [Unknown]

NARRATIVE: CASE EVENT DATE: 201806
